FAERS Safety Report 4600074-9 (Version None)
Quarter: 2005Q1

REPORT INFORMATION
  Report Type: 
  Country: None (occurrence: None)
  Receive Date: 20050307
  Receipt Date: 20050302
  Transmission Date: 20050727
  Serious: Yes (Hospitalization)
  Sender: FDA-Public Use
  Company Number: PHBS2005JP03128

PATIENT
  Age: 82 Year
  Sex: Female
  Weight: 42 kg

DRUGS (6)
  1. TEGRETOL [Suspect]
     Indication: PAIN
     Dosage: 100 MG, BID
     Route: 048
     Dates: start: 20040914, end: 20040917
  2. TEGRETOL [Suspect]
     Dosage: 100 MG, BID
     Route: 048
     Dates: start: 20040922, end: 20040925
  3. UFT [Concomitant]
     Route: 065
  4. GANATON [Concomitant]
     Route: 065
  5. LOXONIN [Concomitant]
     Route: 065
  6. PURSENNID [Concomitant]
     Route: 065

REACTIONS (3)
  - LOSS OF CONSCIOUSNESS [None]
  - MONOPARESIS [None]
  - SOMNOLENCE [None]
